FAERS Safety Report 10183876 (Version 1)
Quarter: 2014Q2

REPORT INFORMATION
  Report Type: Spontaneous
  Country: CN (occurrence: CN)
  Receive Date: 20140520
  Receipt Date: 20140520
  Transmission Date: 20141212
  Serious: Yes (Hospitalization)
  Sender: FDA-Public Use
  Company Number: PHHY2014CN059863

PATIENT
  Age: 79 Year
  Sex: Female
  Weight: 54 kg

DRUGS (8)
  1. TEGRETOL [Suspect]
     Indication: TRIGEMINAL NEURALGIA
     Dosage: 200 MG, BID
     Route: 048
     Dates: start: 20130617, end: 20130618
  2. FURSULTIAMINE [Concomitant]
     Indication: NEUROTROPHIC KERATOPATHY
  3. AMINO ACID [Concomitant]
  4. ADALAT [Concomitant]
     Indication: BLOOD PRESSURE
  5. HUMULIN [Concomitant]
     Indication: BLOOD GLUCOSE
     Dosage: 30 UNK, BID ((30U BOTH IN THE MORNING AND IN THE EVENING))
  6. DULCOLAX [Concomitant]
  7. METHYCOBAL [Concomitant]
  8. ISOSORBIDE MONONITRATE [Concomitant]
     Indication: TOOTH CROWDING

REACTIONS (5)
  - Upper gastrointestinal haemorrhage [Recovering/Resolving]
  - Malaise [Not Recovered/Not Resolved]
  - Vomiting [Recovered/Resolved]
  - Muscular weakness [Recovered/Resolved]
  - Nausea [Recovered/Resolved]
